FAERS Safety Report 5781014-6 (Version None)
Quarter: 2008Q2

REPORT INFORMATION
  Report Type: 
  Country: None (occurrence: None)
  Receive Date: 20080618
  Receipt Date: 20080611
  Transmission Date: 20081010
  Serious: Yes (Other)
  Sender: FDA-Public Use
  Company Number: CHPA2008US09803

PATIENT
  Age: 48 Year
  Sex: Female

DRUGS (1)
  1. NICOTINE [Suspect]
     Indication: SMOKING CESSATION THERAPY
     Dosage: QD, TRANSDERMAL
     Route: 062
     Dates: start: 20080331, end: 20080526

REACTIONS (1)
  - AMNESIA [None]
